FAERS Safety Report 21886876 (Version 2)
Quarter: 2023Q1

REPORT INFORMATION
  Report Type: Report from Study
  Country: GB (occurrence: GB)
  Receive Date: 20230119
  Receipt Date: 20230313
  Transmission Date: 20230417
  Serious: Yes (Hospitalization)
  Sender: FDA-Public Use
  Company Number: GB-JNJFOC-20221246763

PATIENT
  Age: 75 Year
  Sex: Male
  Weight: 54 kg

DRUGS (24)
  1. ERDAFITINIB [Suspect]
     Active Substance: ERDAFITINIB
     Indication: Transitional cell carcinoma
     Route: 048
     Dates: start: 20221005, end: 20221018
  2. ERDAFITINIB [Suspect]
     Active Substance: ERDAFITINIB
     Route: 048
     Dates: start: 20221019, end: 20221019
  3. ERDAFITINIB [Suspect]
     Active Substance: ERDAFITINIB
     Route: 048
     Dates: start: 20221020, end: 20221108
  4. ERDAFITINIB [Suspect]
     Active Substance: ERDAFITINIB
     Route: 048
     Dates: start: 20221115, end: 20221129
  5. ERDAFITINIB [Suspect]
     Active Substance: ERDAFITINIB
     Route: 048
     Dates: start: 20221220, end: 20221220
  6. ERDAFITINIB [Suspect]
     Active Substance: ERDAFITINIB
     Route: 048
     Dates: start: 20221228, end: 20230103
  7. ERDAFITINIB [Suspect]
     Active Substance: ERDAFITINIB
     Dosage: MED KIT NO 155153
     Route: 048
  8. APIXABAN [Concomitant]
     Active Substance: APIXABAN
     Indication: Atrial fibrillation
     Dates: start: 201909
  9. ATORVASTATIN [Concomitant]
     Active Substance: ATORVASTATIN
     Indication: Acute myocardial infarction
     Dates: start: 201909
  10. BISOPROLOL [Concomitant]
     Active Substance: BISOPROLOL
     Indication: Acute myocardial infarction
     Dates: start: 201909
  11. RAMIPRIL [Concomitant]
     Active Substance: RAMIPRIL
     Indication: Hypertension
     Dates: start: 201909
  12. NITROGLYCERIN [Concomitant]
     Active Substance: NITROGLYCERIN
     Indication: Acute myocardial infarction
     Dates: start: 201909
  13. OMEPRAZOLE [Concomitant]
     Active Substance: OMEPRAZOLE
     Indication: Dyspepsia
     Dates: start: 20221018
  14. DIPROBASE [PARAFFIN, LIQUID;WHITE SOFT PARAFFIN] [Concomitant]
     Indication: Rash
     Dates: start: 20221025
  15. THIAMINE [Concomitant]
     Active Substance: THIAMINE
     Indication: Vitamin B complex deficiency
     Dates: start: 20220707
  16. EPLERENONE [Concomitant]
     Active Substance: EPLERENONE
     Indication: Hypertension
     Dates: start: 20220704
  17. SOLIFENACIN [Concomitant]
     Active Substance: SOLIFENACIN
     Indication: Hypertonic bladder
     Dates: start: 20220704
  18. FUROSEMIDE [Concomitant]
     Active Substance: FUROSEMIDE
     Indication: Acute myocardial infarction
     Dates: start: 20220704
  19. BENZYDAMINE HYDROCHLORIDE [Concomitant]
     Active Substance: BENZYDAMINE HYDROCHLORIDE
     Indication: Oropharyngeal pain
     Dates: start: 20221108
  20. BENZYDAMINE HYDROCHLORIDE [Concomitant]
     Active Substance: BENZYDAMINE HYDROCHLORIDE
     Indication: Mouth ulceration
  21. BENZYDAMINE HYDROCHLORIDE [Concomitant]
     Active Substance: BENZYDAMINE HYDROCHLORIDE
     Indication: Stomatitis
  22. FLUCONAZOLE [Concomitant]
     Active Substance: FLUCONAZOLE
     Indication: Oropharyngeal pain
     Dates: start: 20221129
  23. FLUCONAZOLE [Concomitant]
     Active Substance: FLUCONAZOLE
     Indication: Mouth ulceration
  24. FLUCONAZOLE [Concomitant]
     Active Substance: FLUCONAZOLE
     Indication: Stomatitis

REACTIONS (5)
  - Hypotension [Unknown]
  - Haematuria [Unknown]
  - Urinary incontinence [Not Recovered/Not Resolved]
  - Urinary retention [Not Recovered/Not Resolved]
  - Overdose [Unknown]

NARRATIVE: CASE EVENT DATE: 20221201
